FAERS Safety Report 8902106 (Version 5)
Quarter: 2013Q1

REPORT INFORMATION
  Report Type: Report from Study
  Country: US (occurrence: US)
  Receive Date: 20121112
  Receipt Date: 20130122
  Transmission Date: 20140127
  Serious: Yes (Other)
  Sender: FDA-Public Use
  Company Number: US-009507513-1211USA004060

PATIENT
  Age: 48 Year
  Sex: Male
  Weight: 86.62 kg

DRUGS (7)
  1. BOCEPREVIR [Suspect]
     Indication: HEPATITIS C
     Dosage: 800 MG, TID
     Route: 048
     Dates: start: 20121019
  2. BOCEPREVIR [Suspect]
     Indication: HIV INFECTION
  3. RIBAVIRIN [Suspect]
     Indication: HEPATITIS C
     Dosage: 600 MG, BID
     Route: 048
     Dates: start: 20120924
  4. RIBAVIRIN [Suspect]
     Indication: HIV INFECTION
  5. PEGINTERFERON ALFA-2B [Suspect]
     Indication: HEPATITIS C
     Dosage: 150 MICROGRAM, QW
     Route: 058
     Dates: start: 20120924
  6. PEGINTERFERON ALFA-2B [Suspect]
     Indication: HIV INFECTION
  7. ATRIPLA [Suspect]
     Indication: HIV INFECTION
     Dosage: UNK, QD
     Route: 048
     Dates: start: 201109, end: 20121101

REACTIONS (1)
  - Hypophosphataemia [Recovered/Resolved]
